FAERS Safety Report 10980367 (Version 2)
Quarter: 2015Q2

REPORT INFORMATION
  Report Type: Spontaneous
  Country: US (occurrence: US)
  Receive Date: 20150402
  Receipt Date: 20150525
  Transmission Date: 20150821
  Serious: No
  Sender: FDA-Public Use
  Company Number: US-JNJFOC-20140201187

PATIENT
  Sex: Male
  Weight: 74.84 kg

DRUGS (6)
  1. IMODIUM MULTI-SYMPTOM RELIEF [Suspect]
     Active Substance: DIMETHICONE\LOPERAMIDE HYDROCHLORIDE
     Route: 048
  2. VITAMIN [Concomitant]
     Active Substance: VITAMINS
     Indication: ROUTINE HEALTH MAINTENANCE
     Dosage: INTERVAL 2- 3 YEARS
     Route: 065
  3. POTASSIUM [Concomitant]
     Active Substance: POTASSIUM
     Indication: COLECTOMY
     Route: 065
     Dates: start: 201308
  4. UNSPECIFIED NARCOTIC [Concomitant]
     Indication: PAIN
     Dosage: MONTHS AGO
     Route: 065
  5. IMODIUM MULTI-SYMPTOM RELIEF [Suspect]
     Active Substance: DIMETHICONE\LOPERAMIDE HYDROCHLORIDE
     Indication: DIARRHOEA
     Route: 048
  6. COUMADIN [Concomitant]
     Active Substance: WARFARIN SODIUM
     Indication: SURGERY
     Dosage: 1/2 PILL 4 DAYS WEEK / WHOLE PILL 3??DAYS WEEK
     Route: 065
     Dates: start: 201308

REACTIONS (1)
  - Drug ineffective [Unknown]
